FAERS Safety Report 10030667 (Version 1)
Quarter: 2014Q1

REPORT INFORMATION
  Report Type: Spontaneous
  Country: US (occurrence: US)
  Receive Date: 20140323
  Receipt Date: 20140323
  Transmission Date: 20141002
  Serious: No
  Sender: FDA-Public Use
  Company Number: US-ALLERGAN-1319993US

PATIENT
  Age: 29 Year
  Sex: Female

DRUGS (3)
  1. LATISSE 0.03% [Suspect]
     Indication: GROWTH OF EYELASHES
     Dosage: 2 GTT, QHS
     Route: 061
     Dates: start: 20131030
  2. LATISSE 0.03% [Suspect]
     Indication: HAIR GROWTH ABNORMAL
  3. BIRTH CONTROL PILLS NOS [Concomitant]
     Indication: CONTRACEPTION
     Dosage: UNK

REACTIONS (6)
  - Off label use [Unknown]
  - Wrong technique in drug usage process [Unknown]
  - Drug ineffective [Unknown]
  - Erythema of eyelid [Unknown]
  - Eyelid irritation [Unknown]
  - Madarosis [Unknown]
